FAERS Safety Report 23617612 (Version 1)
Quarter: 2024Q1

REPORT INFORMATION
  Report Type: Spontaneous
  Country: US (occurrence: US)
  Receive Date: 20240311
  Receipt Date: 20240311
  Transmission Date: 20240410
  Serious: No
  Sender: FDA-Public Use
  Company Number: US-SA-SAC20240305001208

PATIENT
  Sex: Male
  Weight: 69.85 kg

DRUGS (3)
  1. DUPIXENT [Suspect]
     Active Substance: DUPILUMAB
     Indication: Dermatitis atopic
     Dosage: 300 MG, QOW
     Route: 058
  2. RINVOQ [Suspect]
     Active Substance: UPADACITINIB
     Dosage: UNK
  3. ADBRY [Suspect]
     Active Substance: TRALOKINUMAB-LDRM

REACTIONS (5)
  - Ocular hyperaemia [Unknown]
  - Gastrointestinal disorder [Unknown]
  - Liver function test increased [Unknown]
  - Conjunctivitis [Unknown]
  - Injection site bruising [Unknown]
